FAERS Safety Report 6412518-0 (Version None)
Quarter: 2009Q4

REPORT INFORMATION
  Report Type: 
  Country: None (occurrence: None)
  Receive Date: 20091023
  Receipt Date: 20090626
  Transmission Date: 20100525
  Serious: Yes (Other)
  Sender: FDA-Public Use
  Company Number: US-BRISTOL-MYERS SQUIBB COMPANY-14666184

PATIENT
  Age: 57 Year
  Sex: Female
  Weight: 109 kg

DRUGS (3)
  1. KENALOG-40 [Suspect]
     Indication: NECK PAIN
     Dosage: CERVICAL EPIDURAL STRENGTH 40 MG/ML
     Route: 008
     Dates: start: 20090603
  2. ISOVUE-128 [Suspect]
     Indication: NECK PAIN
     Dosage: 300
     Route: 008
     Dates: start: 20090603
  3. BUPIVACAINE [Concomitant]
     Dosage: STR: 0.5%

REACTIONS (4)
  - BLOOD PRESSURE INCREASED [None]
  - DIZZINESS [None]
  - FEELING ABNORMAL [None]
  - HALLUCINATION [None]
